FAERS Safety Report 7253963-3 (Version None)
Quarter: 2011Q1

REPORT INFORMATION
  Report Type: 
  Country: None (occurrence: None)
  Receive Date: 20110129
  Receipt Date: 20100329
  Transmission Date: 20110831
  Serious: No
  Sender: FDA-Public Use
  Company Number: US-ABBOTT-10P-163-0634989-00

PATIENT
  Sex: Female
  Weight: 74.91 kg

DRUGS (4)
  1. METHOTREXATE [Concomitant]
     Indication: PRODUCT USED FOR UNKNOWN INDICATION
  2. PREDNISONE [Concomitant]
     Indication: PRODUCT USED FOR UNKNOWN INDICATION
  3. HUMIRA [Suspect]
     Indication: RHEUMATOID ARTHRITIS
     Dates: start: 20050301, end: 20090601
  4. HUMIRA [Suspect]
     Dates: start: 20090601

REACTIONS (3)
  - FATIGUE [None]
  - BACK PAIN [None]
  - NECK PAIN [None]
